FAERS Safety Report 5192201-2 (Version None)
Quarter: 2006Q4

REPORT INFORMATION
  Report Type: 
  Country: None (occurrence: None)
  Receive Date: 20061221
  Receipt Date: 20061221
  Transmission Date: 20070319
  Serious: Yes (Life-Threatening)
  Sender: FDA-Public Use
  Company Number: None

PATIENT
  Age: 69 Year
  Sex: Female
  Weight: 80 kg

DRUGS (9)
  1. MACROBID [Suspect]
     Indication: DRUG USE FOR UNKNOWN INDICATION
     Dosage: 100 MG BID PO
     Route: 048
  2. MACROBID [Suspect]
     Indication: URINARY TRACT INFECTION
     Dosage: 100 MG BID PO
     Route: 048
  3. HYDROCHLOROTHIAZIDE [Concomitant]
  4. SINEMET [Concomitant]
  5. BENZTROPINE MESYLATE [Concomitant]
  6. GABAPENTIN [Concomitant]
  7. PEPCID [Concomitant]
  8. ZYPREXA [Concomitant]
  9. TEGRETOL [Concomitant]

REACTIONS (8)
  - AMMONIA INCREASED [None]
  - ARRHYTHMIA [None]
  - ASTHENIA [None]
  - DEPRESSED LEVEL OF CONSCIOUSNESS [None]
  - FALL [None]
  - GAIT DISTURBANCE [None]
  - HEPATITIS ACUTE [None]
  - JAUNDICE CHOLESTATIC [None]
